FAERS Safety Report 18800921 (Version 1)
Quarter: 2021Q1

REPORT INFORMATION
  Report Type: Report from Study
  Country: BR (occurrence: BR)
  Receive Date: 20210128
  Receipt Date: 20210128
  Transmission Date: 20210419
  Serious: Yes (Other)
  Sender: FDA-Public Use
  Company Number: NVSC2020BR343276

PATIENT
  Age: 31 Year
  Sex: Male

DRUGS (2)
  1. COSENTYX [Suspect]
     Active Substance: SECUKINUMAB
     Indication: PSORIASIS
     Dosage: 300 MG, UNKNOWN
     Route: 065
     Dates: start: 20200618
  2. COSENTYX [Suspect]
     Active Substance: SECUKINUMAB
     Dosage: UNK
     Route: 065
     Dates: start: 20200823

REACTIONS (13)
  - Stress [Unknown]
  - Dyspnoea [Unknown]
  - Skin injury [Not Recovered/Not Resolved]
  - Back pain [Recovering/Resolving]
  - Injury [Not Recovered/Not Resolved]
  - Product dose omission issue [Unknown]
  - Tuberculosis [Unknown]
  - Lung disorder [Unknown]
  - Anxiety [Unknown]
  - Therapeutic response unexpected [Unknown]
  - Skin lesion [Unknown]
  - Nail injury [Not Recovered/Not Resolved]
  - Nail atrophy [Not Recovered/Not Resolved]

NARRATIVE: CASE EVENT DATE: 202011
